FAERS Safety Report 6126636-8 (Version None)
Quarter: 2009Q1

REPORT INFORMATION
  Report Type: 
  Country: None (occurrence: None)
  Receive Date: 20090320
  Receipt Date: 20090309
  Transmission Date: 20090719
  Serious: Yes (Hospitalization)
  Sender: FDA-Public Use
  Company Number: DE-AVENTIS-200910679DE

PATIENT
  Age: 64 Year
  Sex: Male
  Weight: 96 kg

DRUGS (5)
  1. GLIMEPIRIDE [Suspect]
     Route: 048
  2. METFORMIN HCL [Suspect]
     Route: 048
  3. RAMIPRIL [Concomitant]
     Indication: HYPERTENSION
     Dosage: DOSE: 2,5
     Route: 048
  4. ARTICAIN [Concomitant]
     Indication: DENTAL OPERATION
     Dosage: DOSE: NOT REPORTED
     Route: 004
     Dates: start: 20090218, end: 20090218
  5. EPINEPHRINE [Concomitant]
     Indication: DENTAL OPERATION
     Dosage: DOSE: NOT REPORTED
     Route: 004
     Dates: start: 20090218, end: 20090218

REACTIONS (5)
  - ARRHYTHMIA [None]
  - DIZZINESS [None]
  - HYPERTENSION [None]
  - NAUSEA [None]
  - VOMITING [None]
